FAERS Safety Report 11174559 (Version 1)
Quarter: 2015Q2

REPORT INFORMATION
  Report Type: Spontaneous
  Country: US (occurrence: US)
  Receive Date: 20150609
  Receipt Date: 20150609
  Transmission Date: 20150821
  Serious: Yes (Hospitalization, Other)
  Sender: FDA-Public Use
  Company Number: US-SA-2015SA079774

PATIENT
  Age: 63 Year
  Sex: Female

DRUGS (1)
  1. AUBAGIO [Suspect]
     Active Substance: TERIFLUNOMIDE
     Indication: MULTIPLE SCLEROSIS
     Route: 048
     Dates: start: 20150508, end: 20150529

REACTIONS (9)
  - Headache [Unknown]
  - Aphonia [Unknown]
  - Insomnia [Unknown]
  - Confusional state [Unknown]
  - Abdominal distension [Unknown]
  - Pain in extremity [Unknown]
  - Hypoaesthesia [Unknown]
  - Weight decreased [Unknown]
  - Palpitations [Unknown]

NARRATIVE: CASE EVENT DATE: 20150527
